FAERS Safety Report 6761373-8 (Version None)
Quarter: 2010Q2

REPORT INFORMATION
  Report Type: 
  Country: None (occurrence: None)
  Receive Date: 20100607
  Receipt Date: 20100524
  Transmission Date: 20101027
  Serious: No
  Sender: FDA-Public Use
  Company Number: 009848

PATIENT
  Age: 77 Year
  Sex: Male

DRUGS (3)
  1. PLETAL [Suspect]
     Dosage: ORAL
     Route: 048
  2. LACTEC (LATATED RINGERS) [Concomitant]
  3. DEXTRAN 40 [Concomitant]

REACTIONS (1)
  - BLOOD POTASSIUM INCREASED [None]
